FAERS Safety Report 7178853-6 (Version None)
Quarter: 2010Q4

REPORT INFORMATION
  Report Type: 
  Country: None (occurrence: None)
  Receive Date: 20101221
  Receipt Date: 20101214
  Transmission Date: 20110411
  Serious: Yes (Hospitalization, Other)
  Sender: FDA-Public Use
  Company Number: US-BRISTOL-MYERS SQUIBB COMPANY-15440670

PATIENT
  Age: 65 Year
  Sex: Female

DRUGS (7)
  1. COUMADIN [Suspect]
     Indication: ATRIAL FIBRILLATION
     Dosage: 1DF:4MG OR 5MG
     Dates: start: 20090401
  2. ACETAMINOPHEN [Suspect]
     Indication: PAIN
  3. DILANTIN [Suspect]
  4. TENORMIN [Concomitant]
  5. VITAMIN D [Concomitant]
  6. DIOVAN [Concomitant]
  7. LANOXIN [Concomitant]
     Dosage: 1DF:0.125MG 4DAYS/WEEK AND 0.25MG 3DAYS/WEEK

REACTIONS (7)
  - CEREBROVASCULAR ACCIDENT [None]
  - CONSTIPATION [None]
  - CONVULSION [None]
  - DIARRHOEA [None]
  - INTERNATIONAL NORMALISED RATIO INCREASED [None]
  - PNEUMONIA [None]
  - TRANSIENT ISCHAEMIC ATTACK [None]
